FAERS Safety Report 21981740 (Version 1)
Quarter: 2023Q1

REPORT INFORMATION
  Report Type: Spontaneous
  Country: US (occurrence: US)
  Receive Date: 20230212
  Receipt Date: 20230212
  Transmission Date: 20230417
  Serious: Yes (Other)
  Sender: FDA-Public Use
  Company Number: US-SA-SAC20230209001813

PATIENT
  Age: 69 Year
  Sex: Female
  Weight: 55.79 kg

DRUGS (2)
  1. DUPILUMAB [Suspect]
     Active Substance: DUPILUMAB
     Indication: Asthma
     Dosage: 300 MG, QOW
     Route: 058
     Dates: start: 20220219
  2. DUPILUMAB [Suspect]
     Active Substance: DUPILUMAB
     Indication: Chronic rhinosinusitis with nasal polyps

REACTIONS (2)
  - Pneumonia [Unknown]
  - Asthma [Unknown]

NARRATIVE: CASE EVENT DATE: 20221001
